FAERS Safety Report 10248191 (Version 1)
Quarter: 2014Q2

REPORT INFORMATION
  Report Type: Report from Study
  Country: US (occurrence: US)
  Receive Date: 20140620
  Receipt Date: 20140620
  Transmission Date: 20141212
  Serious: Yes (Other)
  Sender: FDA-Public Use
  Company Number: US-ABBVIE-14P-163-1246935-00

PATIENT
  Age: 65 Year
  Sex: Female
  Weight: 54.48 kg

DRUGS (10)
  1. HUMIRA [Suspect]
     Indication: CROHN^S DISEASE
     Dates: start: 201403, end: 201403
  2. HUMIRA [Suspect]
     Dates: start: 201403, end: 201403
  3. HUMIRA [Suspect]
     Dates: start: 201404
  4. ATENOLOL [Concomitant]
     Indication: HYPERTENSION
     Route: 048
  5. EVISTA [Concomitant]
     Indication: BONE DENSITY ABNORMAL
     Route: 048
  6. PROBIOTICS [Concomitant]
     Indication: PRODUCT USED FOR UNKNOWN INDICATION
     Route: 048
  7. OMEPRAZOLE [Concomitant]
     Indication: PRODUCT USED FOR UNKNOWN INDICATION
     Route: 048
  8. AZATHIOPRINE [Concomitant]
     Indication: CROHN^S DISEASE
     Route: 048
  9. TRAMADOL [Concomitant]
     Indication: PAIN
     Route: 048
  10. HYDROCODONE [Concomitant]
     Indication: PAIN
     Route: 048

REACTIONS (9)
  - Gastrointestinal fistula [Recovering/Resolving]
  - Abscess intestinal [Recovering/Resolving]
  - Gastrointestinal fistula [Recovering/Resolving]
  - Abscess intestinal [Recovering/Resolving]
  - Gastrointestinal fistula [Recovering/Resolving]
  - Abscess intestinal [Recovering/Resolving]
  - Abscess intestinal [Unknown]
  - Gastrointestinal fistula [Unknown]
  - Device issue [Unknown]
